FAERS Safety Report 15711347 (Version 3)
Quarter: 2019Q1

REPORT INFORMATION
  Report Type: Spontaneous
  Country: JP (occurrence: JP)
  Receive Date: 20181211
  Receipt Date: 20190112
  Transmission Date: 20190417
  Serious: Yes (Hospitalization)
  Sender: FDA-Public Use
  Company Number: JP-DSJP-DSJ-2018-151404AA

PATIENT

DRUGS (4)
  1. ARTIST [Concomitant]
     Active Substance: CARVEDILOL
     Dosage: UNK
     Route: 065
  2. SUNRYTHM INJECTION 50MG [Concomitant]
     Dosage: UNK
     Route: 065
  3. OLMETEC OD [Suspect]
     Active Substance: OLMESARTAN MEDOXOMIL
     Indication: HYPERTENSION
     Dosage: UNK
     Route: 065
  4. PLETAAL [Concomitant]
     Active Substance: CILOSTAZOL
     Dosage: UNK
     Route: 065

REACTIONS (5)
  - Cerebral infarction [Unknown]
  - Dyspnoea [Recovering/Resolving]
  - Atrial fibrillation [Recovered/Resolved]
  - Generalised oedema [Unknown]
  - Cardiac failure [Recovering/Resolving]
